FAERS Safety Report 15621135 (Version 1)
Quarter: 2018Q4

REPORT INFORMATION
  Report Type: Spontaneous
  Country: US (occurrence: US)
  Receive Date: 20181115
  Receipt Date: 20181115
  Transmission Date: 20190205
  Serious: No
  Sender: FDA-Public Use
  Company Number: US-009507513-1811USA003335

PATIENT
  Age: 75 Year
  Sex: Female

DRUGS (2)
  1. INTRON A [Suspect]
     Active Substance: INTERFERON ALFA-2B
     Indication: CHORIORETINITIS
  2. INTRON A [Suspect]
     Active Substance: INTERFERON ALFA-2B
     Indication: RHEUMATOID ARTHRITIS
     Dosage: 0.5 ML OF 6 MILLION UNITS/ML, TIW (STRENGTH: 18 MU)
     Route: 030
     Dates: start: 20180123

REACTIONS (1)
  - Off label use [Unknown]

NARRATIVE: CASE EVENT DATE: 20180123
